FAERS Safety Report 5000026-3 (Version None)
Quarter: 2006Q2

REPORT INFORMATION
  Report Type: 
  Country: None (occurrence: None)
  Receive Date: 20060501
  Receipt Date: 20060419
  Transmission Date: 20061013
  Serious: Yes (Other)
  Sender: FDA-Public Use
  Company Number: 200653918

PATIENT
  Age: 30 Year
  Sex: Female

DRUGS (4)
  1. SYNARELA (NAFARELIN) [Suspect]
     Indication: ILL-DEFINED DISORDER
     Dosage: NASAL
     Route: 045
  2. CHORIOGONADOTROPIN ALFA (CHORIOGONADOTROPIN ALFA) [Suspect]
     Indication: ILL-DEFINED DISORDER
  3. PROGESTERONE [Suspect]
     Indication: ILL-DEFINED DISORDER
  4. PUREGON (FOLLOTROPIN BETA) [Suspect]
     Indication: ILL-DEFINED DISORDER

REACTIONS (2)
  - HYDRONEPHROSIS [None]
  - OVARIAN ENLARGEMENT [None]
